FAERS Safety Report 5803971-1 (Version None)
Quarter: 2008Q3

REPORT INFORMATION
  Report Type: 
  Country: None (occurrence: None)
  Receive Date: 20080703
  Receipt Date: 20080624
  Transmission Date: 20090109
  Serious: Yes (Other)
  Sender: FDA-Public Use
  Company Number: 2008AP001260

PATIENT
  Age: 69 Year
  Sex: Female

DRUGS (4)
  1. SELEGILINE HCL [Suspect]
     Indication: PARKINSON'S DISEASE
     Dosage: 5 MG;BID;PO
     Route: 048
     Dates: start: 20000101
  2. ROPINIROLE [Concomitant]
  3. HYDROCHLORIDE [Concomitant]
  4. CARBIDOPA AND LEVODOPA [Concomitant]

REACTIONS (3)
  - COELIAC DISEASE [None]
  - PROLAPSE REPAIR [None]
  - WEIGHT DECREASED [None]
